FAERS Safety Report 20058927 (Version 1)
Quarter: 2021Q4

REPORT INFORMATION
  Report Type: Spontaneous
  Country: US (occurrence: None)
  Receive Date: 20211111
  Receipt Date: 20211111
  Transmission Date: 20220303
  Serious: Yes (Other)
  Sender: FDA-Public Use
  Company Number: None

PATIENT
  Age: 76 Year
  Sex: Male
  Weight: 86.85 kg

DRUGS (2)
  1. SUPREP BOWEL PREP [Suspect]
     Active Substance: MAGNESIUM SULFATE\POTASSIUM SULFATE\SODIUM SULFATE
     Indication: Colonoscopy
     Dosage: OTHER FREQUENCY : ONCE;?
     Route: 048
     Dates: start: 20210913, end: 20210913
  2. MIRALAX [Concomitant]
     Active Substance: POLYETHYLENE GLYCOL 3350
     Dates: start: 20210910, end: 20210912

REACTIONS (7)
  - Hypertension [None]
  - Headache [None]
  - Migraine [None]
  - Palpitations [None]
  - Chest pain [None]
  - Fatigue [None]
  - Supraventricular extrasystoles [None]

NARRATIVE: CASE EVENT DATE: 20210913
